FAERS Safety Report 12844316 (Version 1)
Quarter: 2016Q4

REPORT INFORMATION
  Report Type: Spontaneous
  Country: US (occurrence: US)
  Receive Date: 20161012
  Receipt Date: 20161012
  Transmission Date: 20170207
  Serious: Yes (Disabling)
  Sender: FDA-Public Use
  Company Number: None

PATIENT
  Age: 83 Year
  Sex: Male
  Weight: 92.25 kg

DRUGS (14)
  1. BUMETANIDE. [Concomitant]
     Active Substance: BUMETANIDE
  2. VITAMIN D3 [Concomitant]
     Active Substance: CHOLECALCIFEROL
  3. ASPIRIN. [Concomitant]
     Active Substance: ASPIRIN
  4. XARELTO [Suspect]
     Active Substance: RIVAROXABAN
     Indication: ATRIAL FIBRILLATION
     Dosage: ?          QUANTITY:1 TABLET(S);?
     Route: 048
     Dates: start: 20160422, end: 20160902
  5. FOCUS VITAMIN [Concomitant]
  6. LOSARTIN [Concomitant]
     Active Substance: LOSARTAN
  7. COUMADIN [Concomitant]
     Active Substance: WARFARIN SODIUM
  8. CALCIUM/MAGNESIUM/ZINC [Concomitant]
  9. ATORVASTATIN [Concomitant]
     Active Substance: ATORVASTATIN
  10. AMIODARONE [Concomitant]
     Active Substance: AMIODARONE
  11. METOPROLOL EP SUCCINATE [Concomitant]
  12. PROBIOTIC [Concomitant]
     Active Substance: PROBIOTICS NOS
  13. LEVOTHYROXINE. [Concomitant]
     Active Substance: LEVOTHYROXINE
  14. DULOXETINE. [Concomitant]
     Active Substance: DULOXETINE

REACTIONS (4)
  - Haemarthrosis [None]
  - Procedural haemorrhage [None]
  - Arthralgia [None]
  - Haemoglobin decreased [None]

NARRATIVE: CASE EVENT DATE: 20160729
